FAERS Safety Report 7310655-X (Version None)
Quarter: 2011Q1

REPORT INFORMATION
  Report Type: 
  Country: None (occurrence: None)
  Receive Date: 20110224
  Receipt Date: 20100623
  Transmission Date: 20110831
  Serious: No
  Sender: FDA-Public Use
  Company Number: US-BRISTOL-MYERS SQUIBB COMPANY-15163470

PATIENT
  Age: 61 Year
  Sex: Female

DRUGS (1)
  1. METFORMIN HCL [Suspect]
     Route: 048
     Dates: end: 20091201

REACTIONS (2)
  - DRUG HYPERSENSITIVITY [None]
  - FATIGUE [None]
